FAERS Safety Report 6679439-X (Version None)
Quarter: 2010Q2

REPORT INFORMATION
  Report Type: 
  Country: None (occurrence: None)
  Receive Date: 20100413
  Receipt Date: 20100331
  Transmission Date: 20101027
  Serious: Yes (Hospitalization)
  Sender: FDA-Public Use
  Company Number: DE-ROCHE-696127

PATIENT
  Sex: Female

DRUGS (5)
  1. BONIVA [Suspect]
     Indication: OSTEOPOROSIS
     Route: 042
     Dates: start: 20090311
  2. ZENTROPIL [Concomitant]
  3. IBUPROFEN [Concomitant]
  4. KEVATRIL [Concomitant]
  5. ENALAPRIL MALEATE [Concomitant]

REACTIONS (5)
  - BALANCE DISORDER [None]
  - DIZZINESS [None]
  - FATIGUE [None]
  - HEADACHE [None]
  - PARAESTHESIA [None]
